FAERS Safety Report 5812354-X (Version None)
Quarter: 2008Q3

REPORT INFORMATION
  Report Type: 
  Country: None (occurrence: None)
  Receive Date: 20080716
  Receipt Date: 20080704
  Transmission Date: 20090109
  Serious: Yes (Hospitalization, Other)
  Sender: FDA-Public Use
  Company Number: CA-PFIZER INC-2007073450

PATIENT
  Age: 30 Year
  Sex: Male

DRUGS (1)
  1. ZOLOFT [Suspect]
     Indication: DEPRESSION
     Route: 048
     Dates: start: 20040701, end: 20041201

REACTIONS (16)
  - AGITATION [None]
  - ANXIETY [None]
  - BLOOD CHOLESTEROL ABNORMAL [None]
  - DIZZINESS [None]
  - DRUG INEFFECTIVE [None]
  - FEELING ABNORMAL [None]
  - MEDICATION ERROR [None]
  - MENTAL DISORDER [None]
  - NERVOUSNESS [None]
  - PAIN [None]
  - PARAESTHESIA [None]
  - PHOTOPHOBIA [None]
  - PSYCHOMOTOR HYPERACTIVITY [None]
  - SENSORY DISTURBANCE [None]
  - STRESS [None]
  - WITHDRAWAL SYNDROME [None]
